FAERS Safety Report 9559585 (Version 1)
Quarter: 2013Q3

REPORT INFORMATION
  Report Type: Spontaneous
  Country: US (occurrence: None)
  Receive Date: 20130925
  Receipt Date: 20130925
  Transmission Date: 20140515
  Serious: Yes (Life-Threatening)
  Sender: FDA-Public Use
  Company Number: 2013EXPUS00136

PATIENT
  Sex: Female
  Weight: 50 kg

DRUGS (1)
  1. EXPAREL [Suspect]
     Indication: POSTOPERATIVE ANALGESIA
     Dosage: UNK, 1X, INFILTRATION
     Dates: start: 2013

REACTIONS (1)
  - Cardiac arrest [None]
